FAERS Safety Report 5334401-4 (Version None)
Quarter: 2007Q2

REPORT INFORMATION
  Report Type: 
  Country: None (occurrence: None)
  Receive Date: 20070523
  Receipt Date: 20070523
  Transmission Date: 20071010
  Serious: Yes (Hospitalization)
  Sender: FDA-Public Use
  Company Number: None

PATIENT
  Sex: Male
  Weight: 79.3795 kg

DRUGS (11)
  1. OXALIPLATIN [Suspect]
     Indication: OESOPHAGEAL ADENOCARCINOMA
     Dosage: 50 MG/M2 1/2K --M-F 28 DY IV
     Route: 042
     Dates: start: 20070319, end: 20070423
  2. CAPECITABINE-DAILY M-F 28 DAYS [Suspect]
     Indication: OESOPHAGEAL ADENOCARCINOMA
     Dosage: 825 MG/M2 1/WK --M-F 28 DY ORAL
     Route: 048
     Dates: start: 20070319, end: 20070425
  3. CETUXIMAB-ONCE/WK-6 WKS [Suspect]
     Indication: OESOPHAGEAL ADENOCARCINOMA
     Dosage: 250 MG/M2 1/WK -M-F 28 DYS IV
     Route: 042
     Dates: start: 20070313, end: 20070423
  4. CETUXIMAB-ONCE/WK-6 WKS [Suspect]
  5. RAD THERAPY-M-F FOR 28 DAYS [Suspect]
     Indication: OESOPHAGEAL ADENOCARCINOMA
     Dosage: 50.4GY-28 1/WK -M-F 28 DYS
     Dates: start: 20070319, end: 20070425
  6. BENZONATATE [Concomitant]
  7. MUCINEX [Concomitant]
  8. RANITIDINE [Concomitant]
  9. PRILOSEC [Concomitant]
  10. WARFARIN SODIUM [Concomitant]
  11. COMPAZINE [Concomitant]

REACTIONS (4)
  - HAEMOPTYSIS [None]
  - HYPERGLYCAEMIA [None]
  - LYMPHOEDEMA [None]
  - VISUAL ACUITY REDUCED [None]
